FAERS Safety Report 6919458-9 (Version None)
Quarter: 2010Q3

REPORT INFORMATION
  Report Type: 
  Country: None (occurrence: None)
  Receive Date: 20100811
  Receipt Date: 20100804
  Transmission Date: 20110219
  Serious: Yes (Other)
  Sender: FDA-Public Use
  Company Number: B0668690A

PATIENT
  Age: 40 Year
  Sex: Male

DRUGS (2)
  1. ABACAVIR SULFATE AND LAMIVUDINE [Suspect]
     Indication: HIV INFECTION
     Route: 065
  2. SUSTIVA [Concomitant]

REACTIONS (2)
  - CHEST PAIN [None]
  - PERICARDITIS [None]
